FAERS Safety Report 7663405-1 (Version None)
Quarter: 2011Q3

REPORT INFORMATION
  Report Type: 
  Country: None (occurrence: None)
  Receive Date: 20110805
  Receipt Date: 20101222
  Transmission Date: 20111222
  Serious: No
  Sender: FDA-Public Use
  Company Number: US-ABBOTT-10P-163-0617726-00

PATIENT
  Sex: Female
  Weight: 57.204 kg

DRUGS (16)
  1. ALLOPURINOL [Concomitant]
     Indication: GOUT
     Dosage: DAILY
  2. ATENOLOL [Concomitant]
     Indication: PRODUCT USED FOR UNKNOWN INDICATION
     Dosage: TAKEN AS DIRECTED
  3. AMITRIPTYLINE HCL [Concomitant]
     Indication: PRODUCT USED FOR UNKNOWN INDICATION
     Dosage: TAKEN AS DIRECTED
  4. PLAVIX [Concomitant]
     Indication: THROMBOSIS
  5. ZEMPLAR [Concomitant]
     Indication: PRODUCT USED FOR UNKNOWN INDICATION
     Dosage: TAKEN AS DIRECTED
  6. COMBIVENT [Concomitant]
     Indication: PRODUCT USED FOR UNKNOWN INDICATION
     Dosage: TAKEN AS DIRECTED
     Route: 055
  7. SINGULAIR [Concomitant]
     Indication: HYPERSENSITIVITY
     Dosage: DAILY
  8. NIASPAN [Suspect]
     Indication: HYPERLIPIDAEMIA
     Dosage: NIGHTLY
     Route: 048
     Dates: start: 20090901
  9. CRESTOR [Concomitant]
     Indication: PRODUCT USED FOR UNKNOWN INDICATION
     Dosage: TAKEN AS DIRECTED
  10. NIASPAN [Suspect]
     Indication: BLOOD CHOLESTEROL INCREASED
  11. NORVASC [Concomitant]
     Indication: HYPERTENSION
     Dosage: DAILY
  12. NIASPAN [Suspect]
  13. ASPIRIN [Concomitant]
     Indication: THROMBOSIS
  14. FUROSEMIDE [Concomitant]
     Indication: PRODUCT USED FOR UNKNOWN INDICATION
     Dosage: TAKEN AS DIRECTED
  15. SODIUM BICARBONATE [Concomitant]
     Indication: PRODUCT USED FOR UNKNOWN INDICATION
     Dosage: TAKEN AS DIRECTED
  16. VITAMIN D [Concomitant]
     Indication: PRODUCT USED FOR UNKNOWN INDICATION
     Dosage: TAKEN AS DIRECTED

REACTIONS (5)
  - PRURITUS [None]
  - RASH PAPULAR [None]
  - FLUSHING [None]
  - NIGHT SWEATS [None]
  - HOT FLUSH [None]
